FAERS Safety Report 21245408 (Version 1)
Quarter: 2022Q3

REPORT INFORMATION
  Report Type: Spontaneous
  Country: TW (occurrence: TW)
  Receive Date: 20220824
  Receipt Date: 20220824
  Transmission Date: 20221027
  Serious: Yes (Other)
  Sender: FDA-Public Use
  Company Number: TW-SUN PHARMACEUTICAL INDUSTRIES LTD-2022R1-347689

PATIENT
  Age: 37 Year
  Sex: Female
  Weight: 45 kg

DRUGS (3)
  1. HYDROXYCHLOROQUINE [Interacting]
     Active Substance: HYDROXYCHLOROQUINE
     Indication: Assisted fertilisation
     Dosage: 200 MILLIGRAM, DAILY
     Route: 065
     Dates: start: 201903
  2. HYDROXYCHLOROQUINE [Interacting]
     Active Substance: HYDROXYCHLOROQUINE
     Dosage: 400 MILLIGRAM, DAILY
     Route: 065
     Dates: start: 201909
  3. ANGELICA SINENSIS ROOT [Interacting]
     Active Substance: ANGELICA SINENSIS ROOT
     Indication: Product used for unknown indication
     Dosage: UNK
     Route: 065

REACTIONS (4)
  - Retinopathy [Recovering/Resolving]
  - Cystoid macular oedema [Unknown]
  - Overdose [Unknown]
  - Drug interaction [Unknown]
